FAERS Safety Report 8936939 (Version 1)
Quarter: 2012Q4

REPORT INFORMATION
  Report Type: Report from Study
  Country: DE (occurrence: DE)
  Receive Date: 20121130
  Receipt Date: 20121130
  Transmission Date: 20130627
  Serious: Yes (Hospitalization)
  Sender: FDA-Public Use
  Company Number: DE-SANOFI-AVENTIS-2012SA086904

PATIENT
  Age: 57 Year
  Sex: Female
  Weight: 80 kg

DRUGS (8)
  1. DOCETAXEL [Suspect]
     Indication: BREAST CANCER
     Route: 065
  2. BEVACIZUMAB [Suspect]
     Indication: BREAST CANCER
     Dosage: dose level: 15 mg/kg
     Route: 042
     Dates: start: 20090528
  3. BEVACIZUMAB [Suspect]
     Indication: BREAST CANCER
     Dosage: dose level: 15 mg/kg
     Route: 042
     Dates: start: 20090910
  4. NIFEDIPINE [Concomitant]
     Dosage: total daily dose reported as 2 x 10mg
  5. ATENOLOL [Concomitant]
     Dosage: total daily dose reported as 2 x 12.5mg
  6. EUTHYROX [Concomitant]
  7. ALLOPURINOL [Concomitant]
  8. SIMVASTATIN [Concomitant]

REACTIONS (1)
  - Gastritis [Recovered/Resolved]
